FAERS Safety Report 5726284-5 (Version None)
Quarter: 2008Q2

REPORT INFORMATION
  Report Type: 
  Country: None (occurrence: None)
  Receive Date: 20080501
  Receipt Date: 20080501
  Transmission Date: 20081010
  Serious: Yes (Life-Threatening, Hospitalization)
  Sender: FDA-Public Use
  Company Number: None

PATIENT
  Age: 48 Year
  Sex: Female
  Weight: 53 kg

DRUGS (20)
  1. TEMSIROLIMUS (25 MG IV) [Suspect]
     Indication: COLORECTAL CANCER
     Dosage: 25 MG IV WEEKLY
     Route: 042
  2. CETUXIMAB (400 MG/M2) [Suspect]
     Indication: COLORECTAL CANCER
     Dosage: 400 MG /M2 LOADING DOSE
  3. TEMSIROLIMUS (20 MG IV) [Suspect]
     Indication: COLORECTAL CANCER
     Dosage: 20 MG IV WEEKLY
     Route: 042
  4. CETUXIMAB (150 MG/M2) [Suspect]
     Indication: COLORECTAL CANCER
     Dosage: 150 MG/M2, WEEKLY, IV
     Route: 042
  5. AMBIEN [Concomitant]
  6. ASPIRIN [Concomitant]
  7. ATIVAN [Concomitant]
  8. DECADRON [Concomitant]
  9. IMODIUM [Concomitant]
  10. KEF-- [Concomitant]
  11. DEPPRA [Concomitant]
  12. LOVENOX [Concomitant]
  13. LUNEST-- [Concomitant]
  14. MIRACLEMOUTHWASH [Concomitant]
  15. PERIDOX [Concomitant]
  16. SYNTHROID [Concomitant]
  17. ZOFRAN [Concomitant]
  18. ACETYLSALICYLIC ACID SRT [Concomitant]
  19. LEVOTHYROXINE SODIUM [Concomitant]
  20. TIMOLOL MALCATE [Concomitant]

REACTIONS (9)
  - BLINDNESS UNILATERAL [None]
  - CEREBRAL ISCHAEMIA [None]
  - CONVULSION [None]
  - HYPOAESTHESIA [None]
  - MUSCULAR WEAKNESS [None]
  - PARAESTHESIA [None]
  - RETINAL ARTERY OCCLUSION [None]
  - SPEECH DISORDER [None]
  - VISUAL ACUITY REDUCED [None]
